FAERS Safety Report 9581230 (Version 2)
Quarter: 2013Q4

REPORT INFORMATION
  Report Type: Report from Study
  Country: BR (occurrence: BR)
  Receive Date: 20131002
  Receipt Date: 20131008
  Transmission Date: 20140711
  Serious: Yes (Other)
  Sender: FDA-Public Use
  Company Number: PHHY2013BR108696

PATIENT
  Age: 67 Year
  Sex: Male

DRUGS (1)
  1. SALMETEROL + FLUTICASONE [Suspect]

REACTIONS (13)
  - Emphysema [Unknown]
  - Obstructive airways disorder [Unknown]
  - Diastolic dysfunction [Unknown]
  - Dyslipidaemia [Unknown]
  - Gastrooesophageal reflux disease [Unknown]
  - Gynaecomastia [Unknown]
  - Left atrial dilatation [Unknown]
  - Type 2 diabetes mellitus [Unknown]
  - Breath sounds abnormal [Unknown]
  - Dyspnoea [Unknown]
  - Hypertension [Unknown]
  - Oedema peripheral [Unknown]
  - Weight increased [Unknown]
